FAERS Safety Report 25988801 (Version 1)
Quarter: 2025Q4

REPORT INFORMATION
  Report Type: Spontaneous
  Country: EU (occurrence: EU)
  Receive Date: 20251103
  Receipt Date: 20251103
  Transmission Date: 20260117
  Serious: Yes (Hospitalization)
  Sender: TEVA
  Company Number: None

PATIENT
  Age: 69 Year
  Sex: Male
  Weight: 64.6 kg

DRUGS (5)
  1. PREDNISOLONE [Suspect]
     Active Substance: PREDNISOLONE
     Indication: Immune-mediated myasthenia gravis
     Dosage: 1X PER DAY 6 PIECES, BRAND NAME NOT SPECIFIED
     Route: 048
     Dates: start: 20251016
  2. INSULIN ASPART [Concomitant]
     Active Substance: INSULIN ASPART
     Indication: Product used for unknown indication
     Dosage: 8 UNITS 3 TIMES A DAY, INSULIN ASPART INJVLST 100E/ML / BRAND NAME NOT SPECIFIED
     Route: 065
  3. GLICLAZIDE [Concomitant]
     Active Substance: GLICLAZIDE
     Indication: Product used for unknown indication
     Dosage: MGA / BRAND NAME NOT SPECIFIED
     Route: 048
  4. METFORMIN [Concomitant]
     Active Substance: METFORMIN HYDROCHLORIDE
     Indication: Product used for unknown indication
     Dosage: BRAND NAME NOT SPECIFIED
     Route: 048
  5. INSULIN GLARGINE [Concomitant]
     Active Substance: INSULIN GLARGINE
     Indication: Product used for unknown indication
     Dosage: 100 UNITS/ML (UNITS PER MILLILITER),?100U/ML INJVLST / BRAND NAME NOT SPECIFIED
     Route: 065

REACTIONS (1)
  - Hyperglycaemia [Not Recovered/Not Resolved]
